FAERS Safety Report 6922723-2 (Version None)
Quarter: 2010Q3

REPORT INFORMATION
  Report Type: 
  Country: None (occurrence: None)
  Receive Date: 20100811
  Receipt Date: 20100802
  Transmission Date: 20110219
  Serious: Yes (Other)
  Sender: FDA-Public Use
  Company Number: TRP_06685_2009

PATIENT
  Sex: Female
  Weight: 90.7194 kg

DRUGS (4)
  1. RIBASPHERE [Suspect]
     Indication: HEPATITIS C
     Dosage: (ORAL), (ORAL)
     Route: 048
     Dates: start: 20091204, end: 20100301
  2. RIBASPHERE [Suspect]
     Indication: HEPATITIS C
     Dosage: (ORAL), (ORAL)
     Route: 048
     Dates: start: 20090101
  3. PEG-INTRON [Suspect]
     Indication: HEPATITIS C
     Dosage: (SUBCUTANEOUS), (SUBCUTANEOUS)
     Route: 058
     Dates: start: 20091009, end: 20100301
  4. PEG-INTRON [Suspect]
     Indication: HEPATITIS C
     Dosage: (SUBCUTANEOUS), (SUBCUTANEOUS)
     Route: 058
     Dates: start: 20091204

REACTIONS (15)
  - AGITATION [None]
  - ALOPECIA [None]
  - ANGER [None]
  - ANXIETY [None]
  - BREAST MASS [None]
  - DECREASED APPETITE [None]
  - DEPRESSION [None]
  - EATING DISORDER [None]
  - FATIGUE [None]
  - FEELING ABNORMAL [None]
  - HAEMORRHAGE [None]
  - INSOMNIA [None]
  - PLATELET COUNT DECREASED [None]
  - SMEAR CERVIX ABNORMAL [None]
  - WEIGHT DECREASED [None]
